FAERS Safety Report 15581570 (Version 1)
Quarter: 2018Q4

REPORT INFORMATION
  Report Type: Spontaneous
  Country: GB (occurrence: GB)
  Receive Date: 20181105
  Receipt Date: 20181105
  Transmission Date: 20190205
  Serious: Yes (Other)
  Sender: FDA-Public Use
  Company Number: GB-AUROBINDO-AUR-APL-2018-053524

PATIENT
  Age: 17 Year
  Sex: Female
  Weight: 44 kg

DRUGS (1)
  1. SERTRALINE [Suspect]
     Active Substance: SERTRALINE HYDROCHLORIDE
     Indication: OBSESSIVE-COMPULSIVE DISORDER
     Dosage: 50 MILLIGRAM
     Route: 048
     Dates: start: 20180712, end: 20180714

REACTIONS (4)
  - Muscle spasms [Recovered/Resolved]
  - Dizziness [Recovered/Resolved]
  - Serotonin syndrome [Recovered/Resolved]
  - Bruxism [Recovered/Resolved]

NARRATIVE: CASE EVENT DATE: 20180712
